FAERS Safety Report 6244063-X (Version None)
Quarter: 2009Q2

REPORT INFORMATION
  Report Type: 
  Country: None (occurrence: None)
  Receive Date: 20090623
  Receipt Date: 20090623
  Transmission Date: 20091009
  Serious: Yes (Death)
  Sender: FDA-Public Use
  Company Number: None

PATIENT
  Age: 24 Year
  Sex: Male
  Weight: 95.2554 kg

DRUGS (1)
  1. METHADONE HCL [Suspect]
     Dates: start: 20081001, end: 20081001

REACTIONS (4)
  - MEDICATION ERROR [None]
  - OVERDOSE [None]
  - VICTIM OF HOMICIDE [None]
  - WRONG DRUG ADMINISTERED [None]
